FAERS Safety Report 6816298-6 (Version None)
Quarter: 2010Q2

REPORT INFORMATION
  Report Type: 
  Country: None (occurrence: None)
  Receive Date: 20100630
  Receipt Date: 20100622
  Transmission Date: 20101027
  Serious: Yes (Life-Threatening, Hospitalization)
  Sender: FDA-Public Use
  Company Number: 2010SP031964

PATIENT
  Age: 56 Year
  Sex: Female
  Weight: 82 kg

DRUGS (18)
  1. PEGINTERFERON ALFA-2A [Suspect]
     Indication: HEPATITIS C
     Dosage: 120 MCG; SC
     Route: 058
     Dates: start: 20100528
  2. RIBAVIRIN [Suspect]
     Indication: HEPATITIS C
     Dosage: 1000 MG;QD;PO
     Route: 048
     Dates: start: 20100528
  3. SEROQUEL [Suspect]
     Indication: INSOMNIA
     Dosage: 300 MG;HS;PO
     Route: 048
     Dates: start: 20050101
  4. RANITIDINE (CON.) [Concomitant]
  5. METHYLIN (CON.) [Concomitant]
  6. CYMBALTA (CON.) [Concomitant]
  7. FEXOFENADINE (CON.) [Concomitant]
  8. ZOLPIDEM (CON.) [Concomitant]
  9. SENOKOT (CON.) [Concomitant]
  10. MORPHINE SULFATE (CON.) [Concomitant]
  11. ATENOLOL (CON.) [Concomitant]
  12. SUDAFED (CON.) [Concomitant]
  13. FLONASE (CON.) [Concomitant]
  14. OXYCONTIN (CON.) [Concomitant]
  15. CLINDAMYCIN (CON.) [Concomitant]
  16. CORTISONE (CON.) [Concomitant]
  17. CARISOPRODOL (CON.) [Concomitant]
  18. DIAZEPAM (CON.) [Concomitant]

REACTIONS (3)
  - ACCIDENTAL OVERDOSE [None]
  - SOMNOLENCE [None]
  - TOXIC ENCEPHALOPATHY [None]
